FAERS Safety Report 5629364-8 (Version None)
Quarter: 2008Q1

REPORT INFORMATION
  Report Type: 
  Country: None (occurrence: None)
  Receive Date: 20080218
  Receipt Date: 20080207
  Transmission Date: 20080703
  Serious: No
  Sender: FDA-Public Use
  Company Number: IT-ELI_LILLY_AND_COMPANY-IT200802002103

PATIENT
  Sex: Female

DRUGS (2)
  1. OLANZAPINE [Suspect]
     Indication: ABNORMAL BEHAVIOUR
     Dosage: 5 MG, DAILY (1/D)
     Route: 048
     Dates: start: 20070724, end: 20071017
  2. OLANZAPINE [Suspect]
     Dates: start: 20070101

REACTIONS (1)
  - IRON DEFICIENCY ANAEMIA [None]
